FAERS Safety Report 11069762 (Version 1)
Quarter: 2015Q2

REPORT INFORMATION
  Report Type: Spontaneous
  Country: US (occurrence: US)
  Receive Date: 20150427
  Receipt Date: 20150427
  Transmission Date: 20150821
  Serious: Yes (Other)
  Sender: FDA-Public Use
  Company Number: US-ASTRAZENECA-2015SE36426

PATIENT
  Age: 51 Year
  Sex: Female
  Weight: 70.7 kg

DRUGS (11)
  1. MULTIVITAMIN [Concomitant]
     Active Substance: VITAMINS
     Route: 048
  2. OMEPRAZOLE. [Concomitant]
     Active Substance: OMEPRAZOLE
     Route: 048
  3. SYNTHROID [Concomitant]
     Active Substance: LEVOTHYROXINE SODIUM
     Route: 048
  4. GLUCOPHAGE [Concomitant]
     Active Substance: METFORMIN HYDROCHLORIDE
     Route: 048
  5. VALTREX [Concomitant]
     Active Substance: VALACYCLOVIR HYDROCHLORIDE
     Route: 048
  6. FASLODEX [Suspect]
     Active Substance: FULVESTRANT
     Route: 030
  7. VITAMIN B12 [Concomitant]
     Active Substance: CYANOCOBALAMIN
     Route: 048
  8. MELATONIN [Concomitant]
     Active Substance: MELATONIN
     Route: 048
  9. TAMOXIFEN [Suspect]
     Active Substance: TAMOXIFEN
     Route: 048
  10. COZAAR [Concomitant]
     Active Substance: LOSARTAN POTASSIUM
     Route: 048
  11. TOPROL XL [Concomitant]
     Active Substance: METOPROLOL SUCCINATE
     Route: 048

REACTIONS (11)
  - Osteoporosis [Unknown]
  - Metastasis [Unknown]
  - Aortic stenosis [Unknown]
  - Dyspnoea exertional [Unknown]
  - Hypothyroidism [Unknown]
  - Memory impairment [Unknown]
  - Gastrooesophageal reflux disease [Unknown]
  - Bone pain [Unknown]
  - Type 1 diabetes mellitus [Unknown]
  - Breast cancer [Unknown]
  - Cardiac disorder [Unknown]

NARRATIVE: CASE EVENT DATE: 2005
